FAERS Safety Report 16695197 (Version 1)
Quarter: 2019Q3

REPORT INFORMATION
  Report Type: Spontaneous
  Country: DE (occurrence: DE)
  Receive Date: 20190813
  Receipt Date: 20190813
  Transmission Date: 20191004
  Serious: Yes (Hospitalization)
  Sender: FDA-Public Use
  Company Number: DE-ROCHE-2372171

PATIENT
  Sex: Male

DRUGS (1)
  1. XOLAIR [Suspect]
     Active Substance: OMALIZUMAB
     Indication: CHRONIC SPONTANEOUS URTICARIA
     Dosage: 150 MG, BID
     Route: 065
     Dates: start: 201601

REACTIONS (3)
  - Renal colic [Unknown]
  - Oxygen saturation abnormal [Unknown]
  - Calculus urinary [Unknown]

NARRATIVE: CASE EVENT DATE: 201907
